FAERS Safety Report 5716518-5 (Version None)
Quarter: 2008Q2

REPORT INFORMATION
  Report Type: 
  Country: None (occurrence: None)
  Receive Date: 20080424
  Receipt Date: 20080415
  Transmission Date: 20081010
  Serious: Yes (Other)
  Sender: FDA-Public Use
  Company Number: US-WYE-H02051908

PATIENT
  Age: 34 Year
  Sex: Female
  Weight: 59.02 kg

DRUGS (7)
  1. EFFEXOR XR [Suspect]
     Indication: DEPRESSION
     Route: 048
     Dates: start: 20070701, end: 20071225
  2. EFFEXOR XR [Suspect]
     Dosage: 150 MG IN AM, 75 MG IN PM DAILY
     Route: 048
     Dates: start: 20071226, end: 20071228
  3. EFFEXOR XR [Suspect]
     Route: 048
     Dates: start: 20071229, end: 20080101
  4. EFFEXOR XR [Suspect]
     Route: 048
     Dates: start: 20080102, end: 20080106
  5. SEROQUEL [Concomitant]
     Dosage: 300 MG FREQUENCY UNKNOWN
     Dates: end: 20071201
  6. SEROQUEL [Concomitant]
     Dosage: QUICK TAPER OFF
     Dates: start: 20071201, end: 20071227
  7. TOPAMAX [Concomitant]
     Indication: DEPRESSION

REACTIONS (7)
  - DIZZINESS [None]
  - DRUG WITHDRAWAL SYNDROME [None]
  - INSOMNIA [None]
  - NIGHT SWEATS [None]
  - SUICIDAL IDEATION [None]
  - TINNITUS [None]
  - VOMITING [None]
